FAERS Safety Report 6189305-4 (Version None)
Quarter: 2009Q2

REPORT INFORMATION
  Report Type: 
  Country: None (occurrence: None)
  Receive Date: 20090512
  Receipt Date: 20090504
  Transmission Date: 20091009
  Serious: Yes (Other)
  Sender: FDA-Public Use
  Company Number: 2009SP009672

PATIENT
  Age: 5 Year
  Sex: Female

DRUGS (1)
  1. CHILDREN'S CLARITIN (5 MG) [Suspect]
     Indication: MULTIPLE ALLERGIES
     Dosage: ONCE; PO
     Route: 048

REACTIONS (1)
  - HALLUCINATION [None]
